FAERS Safety Report 9321736 (Version 4)
Quarter: 2013Q3

REPORT INFORMATION
  Report Type: Spontaneous
  Country: US (occurrence: US)
  Receive Date: 20130531
  Receipt Date: 20130819
  Transmission Date: 20140515
  Serious: Yes (Hospitalization, Other)
  Sender: FDA-Public Use
  Company Number: US-BAYER-2013-062617

PATIENT
  Age: 68 Year
  Sex: Male
  Weight: 92.53 kg

DRUGS (25)
  1. XARELTO [Suspect]
     Indication: ATRIAL FIBRILLATION
     Route: 048
  2. XARELTO [Suspect]
     Indication: CEREBROVASCULAR ACCIDENT PROPHYLAXIS
     Route: 048
     Dates: start: 20130322, end: 20130427
  3. XARELTO [Suspect]
     Indication: ATRIAL FIBRILLATION
     Dosage: 15 MG, QD
     Route: 048
     Dates: start: 20130207, end: 20130317
  4. XARELTO [Suspect]
     Indication: ATRIAL FIBRILLATION
     Route: 048
     Dates: start: 20130214, end: 20130315
  5. ACETYLSALICYLIC ACID({=100 MG) [Interacting]
     Indication: ANTIPLATELET THERAPY
     Dosage: 81 MG, UNK
     Route: 065
  6. TIKOSYN [Suspect]
     Indication: PRODUCT USED FOR UNKNOWN INDICATION
     Dosage: 125 ?G, BID
  7. DRONEDARONE [Suspect]
     Indication: PRODUCT USED FOR UNKNOWN INDICATION
  8. RANEXA [Suspect]
     Indication: ARRHYTHMIA
     Dosage: 500 MG, BID
     Dates: start: 20130612
  9. AMIODARONE [Concomitant]
     Dosage: 200 MG, UNK
  10. AMIODARONE [Concomitant]
     Dosage: 200 MG, BID
     Route: 048
     Dates: start: 20130227
  11. AMIODARONE [Concomitant]
     Dosage: 200 MG, QD
     Route: 048
     Dates: start: 20130612
  12. VITAMIN B COMPLEX [Concomitant]
     Dosage: 1 DF, UNK
     Route: 048
  13. GLYBURIDE [Concomitant]
     Indication: TYPE 2 DIABETES MELLITUS
     Dosage: 1.25 MG, UNK
     Route: 065
  14. GLYBURIDE [Concomitant]
     Indication: TYPE 2 DIABETES MELLITUS
     Dosage: 1.25 MG, UNK
     Route: 065
     Dates: start: 20130606
  15. MULTIVITAMINS [Concomitant]
     Dosage: 1 DF, UNK
     Route: 048
  16. PRAVASTATIN [Concomitant]
     Dosage: 15 MG, UNK
     Route: 048
  17. PRAVASTATIN [Concomitant]
     Dosage: 10 MG, UNK
     Route: 048
  18. PRAVASTATIN [Concomitant]
     Dosage: 10 MG, UNK
     Route: 048
     Dates: start: 20121227, end: 20121227
  19. AVODART [Concomitant]
     Indication: BENIGN PROSTATIC HYPERPLASIA
     Dosage: .5 MG, UNK
     Route: 065
  20. CENTRUM [MINERALS NOS,VITAMINS NOS] [Concomitant]
     Route: 065
  21. COREG [Concomitant]
     Indication: CARDIOMYOPATHY
     Dosage: 40 MG, UNK
     Route: 065
     Dates: start: 20130612
  22. COREG [Concomitant]
     Indication: CARDIOMYOPATHY
     Dosage: 80 MG, UNK
  23. CENTRUM SILVER [Concomitant]
     Dosage: 1 DF, UNK
     Route: 065
  24. TYLENOL [PARACETAMOL] [Concomitant]
     Dosage: 1 DF, UNK
  25. LEVETIRACETAM [Concomitant]
     Dosage: 3 DF, BID
     Route: 048
     Dates: start: 20130528

REACTIONS (5)
  - Subdural haematoma [Recovered/Resolved]
  - Haematuria [Unknown]
  - Electrocardiogram QT prolonged [Unknown]
  - Atrial flutter [Recovered/Resolved]
  - Fall [Recovered/Resolved]
